FAERS Safety Report 20157999 (Version 3)
Quarter: 2022Q1

REPORT INFORMATION
  Report Type: Spontaneous
  Country: US (occurrence: US)
  Receive Date: 20211207
  Receipt Date: 20220318
  Transmission Date: 20220423
  Serious: No
  Sender: FDA-Public Use
  Company Number: US-SA-SAC20211130000182

PATIENT
  Age: 51 Year
  Sex: Female

DRUGS (1)
  1. DUPIXENT [Suspect]
     Active Substance: DUPILUMAB
     Dosage: 300 MG; FREQUENCY-OTHER
     Route: 058
     Dates: start: 202111

REACTIONS (2)
  - Injection site pain [Unknown]
  - Drug titration error [Unknown]

NARRATIVE: CASE EVENT DATE: 20211104
